FAERS Safety Report 9993537 (Version 1)
Quarter: 2014Q1

REPORT INFORMATION
  Report Type: Spontaneous
  Country: CH (occurrence: CH)
  Receive Date: 20140310
  Receipt Date: 20140310
  Transmission Date: 20141002
  Serious: Yes (Other)
  Sender: FDA-Public Use
  Company Number: CH-MYLANLABS-2014S1004564

PATIENT
  Age: 45 Year
  Sex: Male
  Weight: 52 kg

DRUGS (5)
  1. BUPIVACAINE [Suspect]
     Indication: ABDOMINAL PAIN UPPER
     Dosage: 0.25% AT 6 ML/H (360MG DAILY IN 144ML); CHANGED TO 0.5% AT 3 ML/H AFTER 3M
     Route: 008
  2. BUPIVACAINE [Suspect]
     Indication: ABDOMINAL PAIN UPPER
     Dosage: 0.5% AT 3 ML/H (360MG DAILY IN 72ML)
     Route: 008
  3. MORPHINE [Suspect]
     Indication: ABDOMINAL PAIN UPPER
     Dosage: 0.005% AT 6 ML/H (7.16MG DAILY IN 144ML); CHANGED TO 0.01% AT 3 ML/H AFTER 3M
     Route: 008
  4. MORPHINE [Suspect]
     Indication: ABDOMINAL PAIN UPPER
     Dosage: 0.01% AT 3 ML/H (7.16MG DAILY IN 72ML)
     Route: 008
  5. OCTOCAINE WITH EPINEPHRINE [Concomitant]
     Indication: EPIDURAL TEST DOSE
     Dosage: 2% LIDOCAINE WITH 1:200000 EPINEPHRINE
     Route: 008

REACTIONS (2)
  - Fat necrosis [Not Recovered/Not Resolved]
  - Medication residue present [Not Recovered/Not Resolved]
